FAERS Safety Report 22245653 (Version 1)
Quarter: 2023Q2

REPORT INFORMATION
  Report Type: Spontaneous
  Country: US (occurrence: None)
  Receive Date: 20230421
  Receipt Date: 20230421
  Transmission Date: 20230721
  Serious: Yes (Death)
  Sender: FDA-Public Use
  Company Number: None

PATIENT
  Age: 69 Year
  Sex: Female
  Weight: 54.7 kg

DRUGS (17)
  1. CAPECITABINE [Suspect]
     Active Substance: CAPECITABINE
     Indication: Small intestine carcinoma
     Dosage: FREQUENCY : TWICE A DAY;?
     Route: 048
     Dates: start: 202105
  2. CEPHALEXIN [Concomitant]
  3. COVID-10 MRNA VACCINE [Concomitant]
  4. DEXAMETHASONE [Concomitant]
  5. DIPHENHYDRAMINE [Concomitant]
  6. ENZYME DIGEST [Concomitant]
  7. FRANKICENSE INHALATION [Concomitant]
  8. GABAPENTIN [Concomitant]
  9. GRANISETRON [Concomitant]
  10. MULTIVITAMINS [Concomitant]
  11. PROBIOTIC [Concomitant]
  12. SODIUM CHLORIDE [Concomitant]
     Active Substance: SODIUM CHLORIDE
  13. TUKEY TAIL MUSHROOMS [Concomitant]
  14. TURMERIC [Concomitant]
  15. VITAMIN B COMPLEX [Concomitant]
     Active Substance: CYANOCOBALAMIN\DEXPANTHENOL\NIACINAMIDE\PYRIDOXINE HYDROCHLORIDE\RIBOFLAVIN 5^-PHOSPHATE SODIUM\THIA
  16. VITAMIN D [Concomitant]
     Active Substance: VITAMIN D NOS
  17. ZINC [Concomitant]
     Active Substance: ZINC

REACTIONS (1)
  - Death [None]
